FAERS Safety Report 6358722-1 (Version None)
Quarter: 2009Q3

REPORT INFORMATION
  Report Type: 
  Country: None (occurrence: None)
  Receive Date: 20090914
  Receipt Date: 20090909
  Transmission Date: 20100115
  Serious: Yes (Death)
  Sender: FDA-Public Use
  Company Number: CHPA2009US17360

PATIENT
  Sex: Female

DRUGS (1)
  1. BENEFIBER UNKNOWN (NCH) (UNKNOWN) UNKNOWN [Suspect]
     Indication: DIARRHOEA
     Dosage: ORAL
     Route: 048

REACTIONS (1)
  - NO ADVERSE EVENT [None]
